FAERS Safety Report 24850256 (Version 1)
Quarter: 2025Q1

REPORT INFORMATION
  Report Type: Spontaneous
  Country: US (occurrence: US)
  Receive Date: 20250116
  Receipt Date: 20250116
  Transmission Date: 20250409
  Serious: No
  Sender: BAYER HEALTHCARE PHARMACEUTICALS INC.
  Company Number: US-BAYER-2025A005411

PATIENT
  Age: 55 Year
  Sex: Female

DRUGS (1)
  1. ESTRADIOL [Suspect]
     Active Substance: ESTRADIOL

REACTIONS (1)
  - Fungal infection [None]
